FAERS Safety Report 8824510 (Version 2)
Quarter: 2012Q4

REPORT INFORMATION
  Report Type: 
  Country: US (occurrence: US)
  Receive Date: 20121004
  Receipt Date: 20121114
  Transmission Date: 20130627
  Serious: No
  Sender: FDA-Public Use
  Company Number: US-PFIZER INC-2012240766

PATIENT
  Age: 73 Year
  Sex: Female
  Weight: 107 kg

DRUGS (15)
  1. LYRICA [Suspect]
     Indication: NEUROPATHY
     Dosage: 100 mg, 3x/day
     Route: 048
  2. LYRICA [Suspect]
     Indication: FOOT DISCOMFORT
  3. BYETTA [Concomitant]
     Indication: DIABETES
     Dosage: UNK
  4. METFORMIN [Concomitant]
     Indication: DIABETES
     Dosage: UNK
  5. GLIPIZIDE [Concomitant]
     Indication: DIABETES
     Dosage: UNK
  6. LUMIGAN [Concomitant]
     Indication: GLAUCOMA
     Dosage: UNK
  7. COSOPT [Concomitant]
     Indication: GLAUCOMA
     Dosage: UNK
  8. GEMFIBROZIL [Concomitant]
     Dosage: UNK
  9. CYMBALTA [Concomitant]
     Dosage: UNK
  10. CLONAZEPAM [Concomitant]
     Dosage: UNK
  11. TOVIAZ [Concomitant]
     Dosage: UNK, as needed
  12. BABY ASPIRIN [Concomitant]
     Dosage: UNK
  13. MIRAPEX [Concomitant]
     Indication: PARKINSON^S DISEASE
     Dosage: UNK
  14. PROPRANOLOL [Concomitant]
     Indication: PARKINSON^S DISEASE
     Dosage: UNK
  15. LEVODOPA-CARBIDOPA [Concomitant]
     Indication: PARKINSON^S DISEASE
     Dosage: UNK

REACTIONS (2)
  - Glycosylated haemoglobin increased [Unknown]
  - Blood triglycerides increased [Unknown]
